FAERS Safety Report 5723382-7 (Version None)
Quarter: 2008Q2

REPORT INFORMATION
  Report Type: 
  Country: None (occurrence: None)
  Receive Date: 20080425
  Receipt Date: 20080409
  Transmission Date: 20081010
  Serious: Yes (Hospitalization)
  Sender: FDA-Public Use
  Company Number: IDA-00041

PATIENT
  Age: 78 Year
  Sex: Female

DRUGS (6)
  1. AVLOCARDYL (PROPRANOLOL) 40MG [Suspect]
     Indication: PALPITATIONS
     Dosage: 20 MG BID; PO, FORMULATION: TABL
     Route: 048
     Dates: end: 20070827
  2. MONO-TILDIEM: (DILTIAZEM HYDROCHLORIDE) STRENGTH(S): 200MG [Suspect]
     Dosage: 200 MG, DAILY, PO, FORMULATION: CAPS_CR
     Route: 048
     Dates: end: 20070827
  3. NEXIUM [Concomitant]
  4. KENZEN (CANDESARTAN CILEXETIL) [Concomitant]
  5. FENOFIBRATE [Concomitant]
  6. CREON [Concomitant]

REACTIONS (6)
  - DIZZINESS [None]
  - DRUG INTERACTION [None]
  - MUSCULAR WEAKNESS [None]
  - SINUS ARRHYTHMIA [None]
  - SINUS BRADYCARDIA [None]
  - SYNCOPE [None]
